FAERS Safety Report 7667712-8 (Version None)
Quarter: 2011Q3

REPORT INFORMATION
  Report Type: 
  Country: None (occurrence: None)
  Receive Date: 20110806
  Receipt Date: 20110526
  Transmission Date: 20111222
  Serious: No
  Sender: FDA-Public Use
  Company Number: US-ABBOTT-11P-163-0726567-00

PATIENT
  Sex: Female
  Weight: 72.64 kg

DRUGS (5)
  1. COREG [Concomitant]
     Indication: HYPERTENSION
  2. SYNTHROID [Concomitant]
     Indication: HYPOTHYROIDISM
  3. LASIX [Concomitant]
     Indication: FLUID RETENTION
  4. NIASPAN [Suspect]
     Indication: BLOOD CHOLESTEROL INCREASED
     Dates: start: 20110516
  5. ASPIRIN [Concomitant]
     Indication: PROPHYLAXIS

REACTIONS (6)
  - OEDEMA PERIPHERAL [None]
  - EYE SWELLING [None]
  - HEADACHE [None]
  - RASH [None]
  - DIARRHOEA [None]
  - FLUSHING [None]
